FAERS Safety Report 10031845 (Version 1)
Quarter: 2014Q1

REPORT INFORMATION
  Report Type: Spontaneous
  Country: IL (occurrence: IL)
  Receive Date: 20140324
  Receipt Date: 20140324
  Transmission Date: 20141002
  Serious: Yes (Other)
  Sender: FDA-Public Use
  Company Number: IL-MYLANLABS-2014S1005710

PATIENT
  Age: 21 Year
  Sex: Female

DRUGS (4)
  1. METHOTREXATE [Suspect]
     Indication: ECTOPIC PREGNANCY TERMINATION
     Dosage: 100MG
     Route: 042
  2. METHOTREXATE [Suspect]
     Indication: OFF LABEL USE
     Dosage: 100MG
     Route: 042
  3. TRAMADEX [Concomitant]
     Indication: ANALGESIC THERAPY
     Route: 065
  4. DIPYRONE [Concomitant]
     Indication: ANALGESIC THERAPY
     Route: 065

REACTIONS (8)
  - Toxicity to various agents [Recovering/Resolving]
  - Pancytopenia [Recovered/Resolved]
  - Mucosal inflammation [Unknown]
  - Rash maculo-papular [Recovering/Resolving]
  - Skin exfoliation [Unknown]
  - Pruritus [Unknown]
  - Oral candidiasis [Unknown]
  - Pyrexia [Unknown]
